FAERS Safety Report 15325696 (Version 2)
Quarter: 2018Q3

REPORT INFORMATION
  Report Type: Spontaneous
  Country: AU (occurrence: AU)
  Receive Date: 20180828
  Receipt Date: 20180911
  Transmission Date: 20181010
  Serious: Yes (Hospitalization)
  Sender: FDA-Public Use
  Company Number: AU-PFIZER INC-2012260060

PATIENT
  Age: 61 Year
  Sex: Female
  Weight: 134 kg

DRUGS (10)
  1. CEFAZOLIN [Suspect]
     Active Substance: CEFAZOLIN
     Dosage: 1 G, UNK
  2. ROCURONIUM [Suspect]
     Active Substance: ROCURONIUM BROMIDE
     Dosage: 100 UG, UNK
  3. COVERSYL [Concomitant]
     Active Substance: PERINDOPRIL
     Dosage: UNK
  4. FENTANYL. [Suspect]
     Active Substance: FENTANYL
     Dosage: UNK
  5. GENTAMICIN. [Suspect]
     Active Substance: GENTAMICIN
     Dosage: 240 MG, UNK
     Route: 048
  6. METFORMIN HYDROCHLORIDE. [Concomitant]
     Active Substance: METFORMIN HYDROCHLORIDE
     Dosage: UNK
  7. PROPOFOL. [Suspect]
     Active Substance: PROPOFOL
     Dosage: UNK
  8. GRANISETRON [Suspect]
     Active Substance: GRANISETRON
     Dosage: UNK
  9. MIDAZOLAM MALEATE [Suspect]
     Active Substance: MIDAZOLAM MALEATE
     Dosage: UNK
  10. GLICLAZIDE [Concomitant]
     Active Substance: GLICLAZIDE
     Dosage: UNK

REACTIONS (3)
  - Hyperthermia malignant [Recovered/Resolved]
  - Urosepsis [Recovered/Resolved]
  - Multiple organ dysfunction syndrome [Recovered/Resolved]

NARRATIVE: CASE EVENT DATE: 20120430
